FAERS Safety Report 21956787 (Version 1)
Quarter: 2023Q1

REPORT INFORMATION
  Report Type: Spontaneous
  Country: DE (occurrence: DE)
  Receive Date: 20230206
  Receipt Date: 20230206
  Transmission Date: 20230418
  Serious: Yes (Other)
  Sender: FDA-Public Use
  Company Number: None

PATIENT
  Age: 32 Year
  Sex: Male
  Weight: 50 kg

DRUGS (1)
  1. CHLORHEXIDINE GLUCONATE [Suspect]
     Active Substance: CHLORHEXIDINE GLUCONATE
     Indication: Gingivitis
     Dosage: APPLICATION FOR APPROX. 2 YEARS IF NECESSARY 1-2/DAY FOR MAX. 2 WEEKS ; AS NECESSARY

REACTIONS (7)
  - Abdominal discomfort [Unknown]
  - Weight decreased [Unknown]
  - Aphthous ulcer [Unknown]
  - Gastrointestinal sounds abnormal [Unknown]
  - Diarrhoea [Unknown]
  - Faeces discoloured [Unknown]
  - Stomatitis [Unknown]

NARRATIVE: CASE EVENT DATE: 20220101
